FAERS Safety Report 9443627 (Version 1)
Quarter: 2013Q3

REPORT INFORMATION
  Report Type: Spontaneous
  Country: JP (occurrence: None)
  Receive Date: 20130802
  Receipt Date: 20130802
  Transmission Date: 20140515
  Serious: Yes (Disabling)
  Sender: FDA-Public Use
  Company Number: TPA2013A6905

PATIENT
  Age: 80 Year
  Sex: Male

DRUGS (9)
  1. FEBURIC (FEBUXOSTAT) [Suspect]
     Indication: HYPERURICAEMIA
     Dosage: 1 IN 1 D
     Route: 048
     Dates: start: 20130313, end: 20130523
  2. BLOPRESS (CANDESARTAN CILEXETIL) [Concomitant]
  3. FUROSEMIDE (FUROSEMIDE) [Concomitant]
  4. CALTAN (CALCIUM CARBONATE) [Concomitant]
  5. BAYASPIRIN (ACETYLSALICYLIC ACID) (ACETYLSALICYLIC ACID) [Concomitant]
  6. DILTIAZEM HYDROCHLORIDE R (DILTIAZEM HYDROCHLORIDE) [Concomitant]
  7. ARTIST (CARVEDILOL) [Concomitant]
  8. NICHISTATE (TICLOPIDINE HYDROCHLORIDE) [Concomitant]
  9. HERLAT L (NIPEDIPINE) [Concomitant]

REACTIONS (1)
  - Hypothyroidism [None]
